FAERS Safety Report 13558778 (Version 2)
Quarter: 2017Q2

REPORT INFORMATION
  Report Type: Report from Study
  Country: JP (occurrence: JP)
  Receive Date: 20170518
  Receipt Date: 20170526
  Transmission Date: 20170830
  Serious: Yes (Other)
  Sender: FDA-Public Use
  Company Number: JP-ROCHE-1935053

PATIENT
  Age: 92 Year
  Sex: Male

DRUGS (6)
  1. RINDERON V [Concomitant]
     Active Substance: BETAMETHASONE VALERATE
     Indication: RETINAL VEIN OCCLUSION
     Dosage: UNK, QID
     Route: 047
     Dates: end: 20150427
  2. GLANATEC [Concomitant]
     Active Substance: RIPASUDIL HYDROCHLORIDE DIHYDRATE
     Indication: GLAUCOMA
     Dosage: UNK, BID
     Route: 047
     Dates: start: 20150427
  3. AZORGA [Concomitant]
     Active Substance: BRINZOLAMIDE\TIMOLOL MALEATE
     Indication: GLAUCOMA
     Dosage: UNK, BID
     Route: 047
     Dates: start: 20151109
  4. RANIBIZUMAB [Suspect]
     Active Substance: RANIBIZUMAB
     Indication: RETINAL VEIN OCCLUSION
     Dosage: 0.05 ML, UNK
     Route: 031
     Dates: start: 20150318, end: 20150318
  5. ALPHAGAN P [Concomitant]
     Active Substance: BRIMONIDINE TARTRATE
     Indication: GLAUCOMA
     Dosage: UNK, BID
     Route: 047
  6. GATIFLO [Concomitant]
     Active Substance: GATIFLOXACIN
     Indication: ANTIBIOTIC PROPHYLAXIS
     Dosage: BEFORE AND AFTER INJECTION
     Route: 047
     Dates: start: 20150318

REACTIONS (2)
  - Vitreous opacities [Recovered/Resolved]
  - Corneal endotheliitis [Recovering/Resolving]

NARRATIVE: CASE EVENT DATE: 20160713
